FAERS Safety Report 24889074 (Version 1)
Quarter: 2025Q1

REPORT INFORMATION
  Report Type: Spontaneous
  Country: US (occurrence: US)
  Receive Date: 20250127
  Receipt Date: 20250127
  Transmission Date: 20250409
  Serious: No
  Sender: RANBAXY
  Company Number: US-SUN PHARMACEUTICAL INDUSTRIES LTD-2024R1-446664

PATIENT
  Sex: Female

DRUGS (1)
  1. LEVULAN KERASTICK [Suspect]
     Active Substance: AMINOLEVULINIC ACID HYDROCHLORIDE
     Indication: Product used for unknown indication
     Route: 065
     Dates: start: 20240329

REACTIONS (9)
  - Erythema [Recovering/Resolving]
  - Photosensitivity reaction [Recovering/Resolving]
  - Pain [Recovering/Resolving]
  - Lip discolouration [Recovering/Resolving]
  - Skin burning sensation [Recovering/Resolving]
  - Trismus [Recovering/Resolving]
  - Infection [Recovering/Resolving]
  - Skin exfoliation [Recovering/Resolving]
  - Wrong technique in product usage process [Unknown]
